FAERS Safety Report 7955745-3 (Version None)
Quarter: 2011Q4

REPORT INFORMATION
  Report Type: 
  Country: None (occurrence: None)
  Receive Date: 20111204
  Receipt Date: 20060621
  Transmission Date: 20120403
  Serious: Yes (Death)
  Sender: FDA-Public Use
  Company Number: PHHY2006US009287

PATIENT
  Sex: Female

DRUGS (1)
  1. LOTENSIN HCT [Suspect]

REACTIONS (1)
  - PAPILLOEDEMA [None]
